FAERS Safety Report 26205798 (Version 1)
Quarter: 2025Q4

REPORT INFORMATION
  Report Type: Spontaneous
  Country: US (occurrence: US)
  Receive Date: 20251229
  Receipt Date: 20251229
  Transmission Date: 20260117
  Serious: No
  Sender: BRISTOL-MYERS SQUIBB COMPANY
  Company Number: US-BRISTOL-MYERS SQUIBB COMPANY-2025-173307

PATIENT
  Age: 47 Year
  Sex: Male
  Weight: 106.59 kg

DRUGS (3)
  1. IDHIFA [Suspect]
     Active Substance: ENASIDENIB MESYLATE
     Indication: Chronic graft versus host disease
  2. JAKAFI [Concomitant]
     Active Substance: RUXOLITINIB
     Indication: Chronic graft versus host disease
  3. REZUROCK [Concomitant]
     Active Substance: BELUMOSUDIL
     Indication: Chronic graft versus host disease
     Dosage: ONGOING
     Route: 048
     Dates: start: 20251215

REACTIONS (2)
  - Full blood count decreased [Unknown]
  - Off label use [Unknown]
